FAERS Safety Report 5314107-8 (Version None)
Quarter: 2007Q2

REPORT INFORMATION
  Report Type: 
  Country: None (occurrence: None)
  Receive Date: 20070501
  Receipt Date: 20070420
  Transmission Date: 20071010
  Serious: Yes (Other)
  Sender: FDA-Public Use
  Company Number: PFIZER INC-2007032921

PATIENT
  Sex: Male
  Weight: 72.727 kg

DRUGS (1)
  1. CHANTIX [Suspect]
     Indication: SMOKING CESSATION THERAPY
     Dosage: TEXT:DAILY

REACTIONS (4)
  - CATARACT OPERATION [None]
  - FATIGUE [None]
  - INSOMNIA [None]
  - MUSCLE SPASTICITY [None]
